FAERS Safety Report 8189896-8 (Version None)
Quarter: 2012Q1

REPORT INFORMATION
  Report Type: 
  Country: None (occurrence: None)
  Receive Date: 20120305
  Receipt Date: 20120220
  Transmission Date: 20120608
  Serious: Yes (Hospitalization)
  Sender: FDA-Public Use
  Company Number: 20120116

PATIENT
  Sex: Female

DRUGS (1)
  1. VENOFER [Suspect]
     Indication: PRODUCT USED FOR UNKNOWN INDICATION
     Dosage: INJECTION NOS

REACTIONS (2)
  - SKIN DISCOLOURATION [None]
  - MUSCLE SPASMS [None]
